FAERS Safety Report 9539225 (Version 1)
Quarter: 2013Q2

REPORT INFORMATION
  Report Type: Spontaneous
  Country: US (occurrence: None)
  Receive Date: 20130517
  Receipt Date: 20130517
  Transmission Date: 20140414
  Serious: Yes (Hospitalization, Other)
  Sender: FDA-Public Use
  Company Number: 1000043819

PATIENT
  Age: 60 Year
  Sex: Male

DRUGS (2)
  1. VIIBRYD [Suspect]
     Indication: DEPRESSION
     Route: 048
  2. VIIBRYD [Suspect]
     Indication: DEPRESSION
     Route: 048

REACTIONS (3)
  - Serotonin syndrome [None]
  - Mania [None]
  - Anxiety [None]
